FAERS Safety Report 4832833-1 (Version None)
Quarter: 2005Q4

REPORT INFORMATION
  Report Type: 
  Country: None (occurrence: None)
  Receive Date: 20051121
  Receipt Date: 20050930
  Transmission Date: 20060501
  Serious: Yes (Hospitalization)
  Sender: FDA-Public Use
  Company Number: US-MERCK-0510USA01940

PATIENT
  Sex: Male
  Weight: 75 kg

DRUGS (11)
  1. VIOXX [Suspect]
     Indication: MIGRAINE
     Route: 048
     Dates: start: 20001120, end: 20030115
  2. VIOXX [Suspect]
     Indication: ARTHRITIS
     Route: 048
     Dates: start: 20001120, end: 20030115
  3. CELEBREX [Concomitant]
     Route: 065
  4. AMITRIPTYLINE HYDROCHLORIDE [Concomitant]
     Route: 065
  5. SKELAXIN [Concomitant]
     Route: 065
  6. ACETAMINOPHEN AND CODEINE [Concomitant]
     Route: 065
  7. [THERAPY UNSPECIFIED] [Concomitant]
     Route: 065
  8. AGGRENOX [Concomitant]
     Route: 065
  9. GUAIFENEX LA [Concomitant]
     Route: 065
  10. METOCLOPRAMIDE [Concomitant]
     Route: 065
  11. IMITREX [Concomitant]
     Route: 065

REACTIONS (5)
  - CATARACT [None]
  - CEREBROVASCULAR ACCIDENT [None]
  - DEPRESSION [None]
  - MEMORY IMPAIRMENT [None]
  - SINUS DISORDER [None]
